FAERS Safety Report 19016157 (Version 12)
Quarter: 2021Q3

REPORT INFORMATION
  Report Type: Report from Study
  Country: DK (occurrence: DK)
  Receive Date: 20210316
  Receipt Date: 20210927
  Transmission Date: 20211014
  Serious: Yes (Death, Life-Threatening, Hospitalization, Disabling, Other)
  Sender: FDA-Public Use
  Company Number: DK-MYLANLABS-2020M1082748

PATIENT
  Age: 5 Year
  Sex: Male
  Weight: 9.7 kg

DRUGS (53)
  1. DURAGESIC [Suspect]
     Active Substance: FENTANYL
     Indication: PRODUCT USED FOR UNKNOWN INDICATION
     Dosage: UNK
  2. BENZYLPENICILLIN [Suspect]
     Active Substance: PENICILLIN G
     Dosage: UNK
  3. M?M?RVAXPRO [Suspect]
     Active Substance: MEASLES VIRUS STRAIN ENDERS^ ATTENUATED EDMONSTON LIVE ANTIGEN\MUMPS VIRUS STRAIN B LEVEL JERYL LYNN LIVE ANTIGEN\RUBELLA VIRUS STRAIN WISTAR RA 27/3 LIVE ANTIGEN
     Indication: IMMUNISATION
  4. MUMPS AND RUBELLA VACCINE [Suspect]
     Active Substance: RUBELLA AND MUMPS VIRUS VACCINE, LIVE
     Dosage: UNK
  5. DARROW LIQ GLUCOSE [Suspect]
     Active Substance: DEXTROSE\POTASSIUM CHLORIDE\SODIUM CHLORIDE\SODIUM CITRATE
     Dosage: UNK (DARROW LIQ GLUCOSE)
  6. CO?AMOXICLAV                       /00756801/ [Suspect]
     Active Substance: AMOXICILLIN\CLAVULANIC ACID
     Dosage: UNK
     Dates: start: 20160714, end: 20160720
  7. POTASSIUM CHLORIDE. [Suspect]
     Active Substance: POTASSIUM CHLORIDE
     Dosage: UNK
     Route: 065
  8. SALBUTAMOL [Suspect]
     Active Substance: ALBUTEROL
     Indication: PRODUCT USED FOR UNKNOWN INDICATION
     Dosage: UNK
     Route: 065
  9. FENTANYL. [Suspect]
     Active Substance: FENTANYL
     Dosage: UNK
     Route: 065
  10. MEROPENEM. [Suspect]
     Active Substance: MEROPENEM
     Indication: ANTIBIOTIC THERAPY
     Dosage: UNK
     Route: 065
  11. PIPERACILLIN/TAZOBACTAM [Suspect]
     Active Substance: PIPERACILLIN SODIUM\TAZOBACTAM SODIUM
     Indication: RESPIRATORY ARREST
     Dosage: UNK
     Route: 065
  12. PROPOFOL. [Suspect]
     Active Substance: PROPOFOL
     Dosage: UNK
     Route: 065
  13. MUMPS AND RUBELLA VACCINE [Suspect]
     Active Substance: RUBELLA AND MUMPS VIRUS VACCINE, LIVE
     Dosage: UNK
  14. DARROW LIQ GLUCOSE [Suspect]
     Active Substance: DEXTROSE\POTASSIUM CHLORIDE\SODIUM CHLORIDE\SODIUM CITRATE
     Dosage: UNK (DARROW LIQ GLUCOSE)
  15. DARROW LIQ GLUCOSE [Suspect]
     Active Substance: DEXTROSE\POTASSIUM CHLORIDE\SODIUM CHLORIDE\SODIUM CITRATE
     Dosage: UNK (DARROW LIQ GLUCOSE)
  16. DARROW LIQ GLUCOSE [Suspect]
     Active Substance: DEXTROSE\POTASSIUM CHLORIDE\SODIUM CHLORIDE\SODIUM CITRATE
     Dosage: UNK (DARROW LIQ GLUCOSE)
  17. RUBELLA VIRUS VACCINE LIVE ATTENUATED [Suspect]
     Active Substance: RUBELLA VIRUS STRAIN WISTAR RA 27/3 LIVE ANTIGEN
     Indication: PRODUCT USED FOR UNKNOWN INDICATION
     Dosage: UNK
  18. AMOXICILLIN/CLAVULANIC ACID [Suspect]
     Active Substance: AMOXICILLIN\CLAVULANIC ACID
     Indication: PNEUMONIA
     Dosage: UNK
     Route: 065
     Dates: start: 20160714, end: 20160720
  19. CEFUROXIME. [Suspect]
     Active Substance: CEFUROXIME
     Indication: ANTIBIOTIC THERAPY
     Dosage: UNK
     Route: 042
  20. M?M?RVAXPRO [Suspect]
     Active Substance: MEASLES VIRUS STRAIN ENDERS^ ATTENUATED EDMONSTON LIVE ANTIGEN\MUMPS VIRUS STRAIN B LEVEL JERYL LYNN LIVE ANTIGEN\RUBELLA VIRUS STRAIN WISTAR RA 27/3 LIVE ANTIGEN
     Indication: PNEUMOCOCCAL SEPSIS
     Dosage: UNK (MFR VACCINATION)
     Route: 065
  21. GENTAMICIN SULFATE. [Suspect]
     Active Substance: GENTAMICIN SULFATE
     Indication: MUMPS IMMUNISATION
     Dosage: UNK
  22. VENTOLINE                          /00139502/ [Suspect]
     Active Substance: ALBUTEROL SULFATE
     Indication: PRODUCT USED FOR UNKNOWN INDICATION
     Dosage: UNK
  23. GLUCOSE [Suspect]
     Active Substance: DEXTROSE
     Indication: PNEUMONIA
     Dosage: UNK
     Route: 065
  24. SODIUM CHLORIDE. [Suspect]
     Active Substance: SODIUM CHLORIDE
     Dosage: UNK
  25. PHENOXYMETHYLPENICILLIN [Suspect]
     Active Substance: PENICILLIN V
     Indication: ANTIBIOTIC THERAPY
     Dosage: UNK
     Route: 065
  26. GENTAMICIN SULFATE. [Suspect]
     Active Substance: GENTAMICIN SULFATE
     Indication: RUBELLA IMMUNISATION
     Dosage: UNK
  27. PULMOZYME [Suspect]
     Active Substance: DORNASE ALFA
     Indication: INTERSTITIAL LUNG DISEASE
     Dosage: UNK
  28. SODIUM CHLORIDE. [Suspect]
     Active Substance: SODIUM CHLORIDE
     Indication: PNEUMONIA
     Dosage: UNK
     Route: 065
  29. CLAVULANATE POTASSIUM [Suspect]
     Active Substance: CLAVULANATE POTASSIUM
     Dosage: UNK
  30. FENTANYL. [Suspect]
     Active Substance: FENTANYL
     Indication: PRODUCT USED FOR UNKNOWN INDICATION
     Dosage: UNK
  31. PENICILLIN G                       /00000901/ [Suspect]
     Active Substance: PENICILLIN G
     Indication: PRODUCT USED FOR UNKNOWN INDICATION
     Dosage: UNK
  32. SODIUM CITRATE DIHYDRATE [Suspect]
     Active Substance: TRISODIUM CITRATE DIHYDRATE
     Dosage: UNK
     Route: 065
  33. GENTAMICIN SULFATE. [Suspect]
     Active Substance: GENTAMICIN SULFATE
     Indication: PNEUMOCOCCAL SEPSIS
     Dosage: UNK
     Route: 042
  34. SODIUM CITRATE DIHYDRATE [Suspect]
     Active Substance: TRISODIUM CITRATE DIHYDRATE
     Indication: PNEUMONIA
     Dosage: UNK
     Route: 065
  35. DORNASE ALFA. [Suspect]
     Active Substance: DORNASE ALFA
     Indication: INTERSTITIAL LUNG DISEASE
     Dosage: UNK
  36. MEROPENEM. [Suspect]
     Active Substance: MEROPENEM
     Dosage: UNK
  37. AMOXICILLIN/CLAVULANIC ACID [Suspect]
     Active Substance: AMOXICILLIN\CLAVULANIC ACID
     Dosage: UNK
     Dates: start: 20150611
  38. PIPERACILLIN/TAZOBACTAM [Suspect]
     Active Substance: PIPERACILLIN SODIUM\TAZOBACTAM SODIUM
     Indication: VOMITING
     Dosage: UNK
  39. PROPOFOL. [Suspect]
     Active Substance: PROPOFOL
     Indication: PRODUCT USED FOR UNKNOWN INDICATION
     Dosage: UNK
  40. MUMPS AND RUBELLA VACCINE [Suspect]
     Active Substance: RUBELLA AND MUMPS VIRUS VACCINE, LIVE
     Indication: PRODUCT USED FOR UNKNOWN INDICATION
     Dosage: UNK
     Route: 065
  41. DARROW LIQ GLUCOSE [Suspect]
     Active Substance: DEXTROSE\POTASSIUM CHLORIDE\SODIUM CHLORIDE\SODIUM CITRATE
     Dosage: UNK (DARROW LIQ GLUCOSE)
  42. CO?AMOXICLAV                       /00756801/ [Suspect]
     Active Substance: AMOXICILLIN\CLAVULANIC ACID
     Indication: PNEUMONIA
     Dosage: UNK
     Dates: start: 20150611
  43. POTASSIUM CHLORIDE. [Suspect]
     Active Substance: POTASSIUM CHLORIDE
     Indication: PNEUMONIA
     Dosage: UNK
     Route: 065
  44. AMOXICILLIN. [Suspect]
     Active Substance: AMOXICILLIN
     Indication: PRODUCT USED FOR UNKNOWN INDICATION
     Dosage: UNK
  45. CIPROFLOXACIN. [Suspect]
     Active Substance: CIPROFLOXACIN
     Indication: PRODUCT USED FOR UNKNOWN INDICATION
     Dosage: UNK
     Route: 065
  46. BENZYLPENICILLIN [Suspect]
     Active Substance: PENICILLIN G
     Indication: PRODUCT USED FOR UNKNOWN INDICATION
     Dosage: UNK
  47. GENTAMICIN SULFATE. [Suspect]
     Active Substance: GENTAMICIN SULFATE
     Indication: ANTIBIOTIC THERAPY
     Dosage: UNK
     Route: 042
  48. GENTAMICIN SULFATE. [Suspect]
     Active Substance: GENTAMICIN SULFATE
     Indication: MEASLES IMMUNISATION
     Dosage: UNK
     Route: 042
  49. DARROW LIQ GLUCOSE [Suspect]
     Active Substance: DEXTROSE\POTASSIUM CHLORIDE\SODIUM CHLORIDE\SODIUM CITRATE
     Indication: PNEUMONIA
     Dosage: UNK (DARROW LIQ GLUCOSE)
  50. DARROW LIQ GLUCOSE [Suspect]
     Active Substance: DEXTROSE\POTASSIUM CHLORIDE\SODIUM CHLORIDE\SODIUM CITRATE
     Dosage: UNK (DARROW LIQ GLUCOSE)
  51. PULMOZYME [Suspect]
     Active Substance: DORNASE ALFA
     Dosage: UNK
     Route: 065
  52. CLAVULANATE POTASSIUM [Suspect]
     Active Substance: CLAVULANATE POTASSIUM
     Indication: PRODUCT USED FOR UNKNOWN INDICATION
     Dosage: UNK
  53. MUMPS VIRUS VACCINE LIVE NOS [Suspect]
     Active Substance: MUMPS VIRUS STRAIN B LEVEL JERYL LYNN LIVE ANTIGEN
     Indication: PRODUCT USED FOR UNKNOWN INDICATION
     Dosage: UNK

REACTIONS (40)
  - Intestinal ischaemia [Fatal]
  - Respiratory arrest [Unknown]
  - Metabolic disorder [Unknown]
  - Mechanical ventilation [Unknown]
  - Lower respiratory tract infection bacterial [Unknown]
  - Muscle atrophy [Fatal]
  - Inflammation [Fatal]
  - Spinal muscular atrophy [Fatal]
  - Respiratory tract infection bacterial [Unknown]
  - Pyrexia [Unknown]
  - Vomiting [Unknown]
  - Chest X-ray abnormal [Unknown]
  - Endotracheal intubation [Unknown]
  - Disease complication [Not Recovered/Not Resolved]
  - Cerebral ischaemia [Fatal]
  - Motor dysfunction [Fatal]
  - Dysphagia [Unknown]
  - Increased bronchial secretion [Unknown]
  - Bilevel positive airway pressure [Unknown]
  - Secretion discharge [Unknown]
  - Bronchial disorder [Fatal]
  - Pneumococcal sepsis [Recovered/Resolved]
  - Lung consolidation [Unknown]
  - Injury [Unknown]
  - Malaise [Unknown]
  - Dyspnoea [Unknown]
  - Ischaemic cerebral infarction [Unknown]
  - Condition aggravated [Unknown]
  - Circulatory collapse [Fatal]
  - Pneumonia [Fatal]
  - Dehydration [Fatal]
  - Interstitial lung disease [Unknown]
  - Brain injury [Fatal]
  - Muscular weakness [Fatal]
  - Diarrhoea [Fatal]
  - Atelectasis [Fatal]
  - Tachypnoea [Unknown]
  - Resuscitation [Unknown]
  - Pneumonia aspiration [Not Recovered/Not Resolved]
  - Sputum increased [Unknown]

NARRATIVE: CASE EVENT DATE: 20160620
